FAERS Safety Report 23676373 (Version 1)
Quarter: 2024Q1

REPORT INFORMATION
  Report Type: Spontaneous
  Country: US (occurrence: US)
  Receive Date: 20240327
  Receipt Date: 20240327
  Transmission Date: 20240410
  Serious: Yes (Other)
  Sender: FDA-Public Use
  Company Number: US-BEH-2024170164

PATIENT
  Age: 29 Year
  Sex: Female

DRUGS (2)
  1. HUMAN RHO(D) IMMUNE GLOBULIN [Suspect]
     Active Substance: HUMAN RHO(D) IMMUNE GLOBULIN
     Indication: Prophylaxis against Rh isoimmunisation
     Dosage: DOSE AT 28 WEEKS
     Route: 065
  2. HUMAN RHO(D) IMMUNE GLOBULIN [Suspect]
     Active Substance: HUMAN RHO(D) IMMUNE GLOBULIN
     Dosage: DOSE AT POSTPARTUM DAY 1
     Route: 065

REACTIONS (8)
  - Serum sickness [Unknown]
  - Arthralgia [Unknown]
  - Arthritis [Unknown]
  - Flushing [Unknown]
  - Feeling hot [Unknown]
  - Injection site pain [Unknown]
  - Injection site swelling [Unknown]
  - Maternal exposure during pregnancy [Unknown]
